FAERS Safety Report 5724614-1 (Version None)
Quarter: 2008Q2

REPORT INFORMATION
  Report Type: 
  Country: None (occurrence: None)
  Receive Date: 20080501
  Receipt Date: 20080423
  Transmission Date: 20081010
  Serious: Yes (Hospitalization)
  Sender: FDA-Public Use
  Company Number: JP-BRISTOL-MYERS SQUIBB COMPANY-14171102

PATIENT
  Age: 26 Year
  Sex: Female

DRUGS (2)
  1. ABILIFY [Suspect]
     Indication: SCHIZOPHRENIA
     Dosage: 24MG,5FEB-13FEB; 18MG,14FEB-04MAR;12MG,05MAR-11MAR;6MG,12MAR-17MAR08
     Route: 048
     Dates: start: 20080131, end: 20080317
  2. RISPERDAL [Concomitant]
     Dates: start: 20071228, end: 20080131

REACTIONS (3)
  - AKATHISIA [None]
  - RESTLESSNESS [None]
  - THINKING ABNORMAL [None]
